FAERS Safety Report 6072934-6 (Version None)
Quarter: 2009Q1

REPORT INFORMATION
  Report Type: 
  Country: None (occurrence: None)
  Receive Date: 20090210
  Receipt Date: 20090202
  Transmission Date: 20090719
  Serious: Yes (Other)
  Sender: FDA-Public Use
  Company Number: US-ALLERGAN-0901211US

PATIENT
  Sex: Female

DRUGS (1)
  1. BOTOX [Suspect]
     Indication: TORTICOLLIS
     Dosage: UNK, SINGLE
     Route: 030

REACTIONS (8)
  - AMNESIA [None]
  - BALANCE DISORDER [None]
  - CEREBELLAR ATROPHY [None]
  - DEPRESSION [None]
  - DRUG INEFFECTIVE [None]
  - DYSARTHRIA [None]
  - EMOTIONAL DISORDER [None]
  - MOTOR DYSFUNCTION [None]
